FAERS Safety Report 15994031 (Version 1)
Quarter: 2019Q1

REPORT INFORMATION
  Report Type: Spontaneous
  Country: US (occurrence: US)
  Receive Date: 20190222
  Receipt Date: 20190222
  Transmission Date: 20190418
  Serious: No
  Sender: FDA-Public Use
  Company Number: US-SHIRE-US201905939

PATIENT
  Age: 27 Year
  Sex: Female

DRUGS (1)
  1. CINRYZE [Suspect]
     Active Substance: HUMAN C1-ESTERASE INHIBITOR
     Indication: PRODUCT USED FOR UNKNOWN INDICATION
     Dosage: 2500 INTERNATIONAL UNIT,EVERY 3 DAYS
     Route: 065
     Dates: start: 20180119

REACTIONS (4)
  - Prescribed overdose [Unknown]
  - Off label use [Unknown]
  - Exposure during pregnancy [Unknown]
  - Hereditary angioedema [Unknown]

NARRATIVE: CASE EVENT DATE: 20190217
